FAERS Safety Report 7428590-5 (Version None)
Quarter: 2011Q2

REPORT INFORMATION
  Report Type: 
  Country: None (occurrence: None)
  Receive Date: 20110421
  Receipt Date: 20091220
  Transmission Date: 20111010
  Serious: Yes (Death, Hospitalization, Other)
  Sender: FDA-Public Use
  Company Number: US-BAYER-200943090NA

PATIENT
  Age: 87 Year
  Sex: Male
  Weight: 84 kg

DRUGS (9)
  1. TRASYLOL [Suspect]
     Indication: CORONARY ARTERY BYPASS
     Dosage: TEST DOSE PUMP PRIME DOSE 2 MILLION KIU LOADING DOSE ^FULL DOSE^ PER MR
     Route: 042
     Dates: start: 20050209
  2. ASPIRIN [Concomitant]
     Dosage: 325 MG, QD
  3. DIGOXIN [Concomitant]
     Dosage: 0.125 MG, QD
     Route: 048
  4. TERAZOSIN [Concomitant]
     Dosage: 10 MG, QD
     Route: 048
  5. LISINOPRIL [Concomitant]
     Dosage: 40 MG, QD
     Route: 048
  6. DOPAMINE HCL [Concomitant]
     Dosage: UNK
     Route: 042
     Dates: start: 20050209, end: 20050210
  7. HYDRALAZINE [Concomitant]
     Dosage: 25 MG, TID
     Route: 048
  8. DILTIAZEM [Concomitant]
     Dosage: 120 MG, BID
     Route: 048
  9. LOVASTATIN [Concomitant]
     Dosage: 20 MG, QD
     Route: 048

REACTIONS (10)
  - ANXIETY [None]
  - FEAR [None]
  - ANHEDONIA [None]
  - DEATH [None]
  - DEPRESSION [None]
  - CEREBROVASCULAR ACCIDENT [None]
  - PAIN [None]
  - UNEVALUABLE EVENT [None]
  - RENAL FAILURE [None]
  - INJURY [None]
